FAERS Safety Report 19089728 (Version 1)
Quarter: 2021Q2

REPORT INFORMATION
  Report Type: Report from Study
  Country: DE (occurrence: DE)
  Receive Date: 20210403
  Receipt Date: 20210403
  Transmission Date: 20210717
  Serious: Yes (Other)
  Sender: FDA-Public Use
  Company Number: DE-UCBSA-2021014074

PATIENT
  Age: 78 Year
  Sex: Male

DRUGS (1)
  1. ROTIGOTINE PD [Suspect]
     Active Substance: ROTIGOTINE
     Indication: PARKINSON^S DISEASE
     Dosage: UNK

REACTIONS (5)
  - Parkinson^s disease [Unknown]
  - Hallucination [Unknown]
  - Orthostatic hypotension [Unknown]
  - Erectile dysfunction [Unknown]
  - Gastrointestinal motility disorder [Unknown]
